FAERS Safety Report 7750200-8 (Version None)
Quarter: 2011Q3

REPORT INFORMATION
  Report Type: 
  Country: None (occurrence: None)
  Receive Date: 20110825
  Receipt Date: 20110518
  Transmission Date: 20111222
  Serious: No
  Sender: FDA-Public Use
  Company Number: 328004

PATIENT
  Age: 61 Year
  Sex: Female

DRUGS (3)
  1. VICTOZA [Suspect]
     Indication: TYPE 2 DIABETES MELLITUS
     Dosage: 0.6 MG, QD, SUBCUTANEOUS ; 1.8 MG, QD
     Route: 058
     Dates: start: 20110503
  2. VICTOZA [Suspect]
     Indication: TYPE 2 DIABETES MELLITUS
     Dosage: 0.6 MG, QD, SUBCUTANEOUS ; 1.8 MG, QD
     Route: 058
     Dates: start: 20110405
  3. SYNTHROID [Concomitant]

REACTIONS (4)
  - WEIGHT DECREASED [None]
  - DIZZINESS [None]
  - ARTHRALGIA [None]
  - NAUSEA [None]
